FAERS Safety Report 5830417-X (Version None)
Quarter: 2008Q3

REPORT INFORMATION
  Report Type: 
  Country: None (occurrence: None)
  Receive Date: 20080801
  Receipt Date: 20080723
  Transmission Date: 20090109
  Serious: Yes (Other)
  Sender: FDA-Public Use
  Company Number: US-JNJFOC-20080705785

PATIENT
  Sex: Female
  Weight: 145.15 kg

DRUGS (4)
  1. REMICADE [Suspect]
     Route: 042
  2. REMICADE [Suspect]
     Indication: CROHN'S DISEASE
     Route: 042
  3. NEXIUM [Concomitant]
  4. IRON [Concomitant]

REACTIONS (4)
  - COLON OPERATION [None]
  - CROHN'S DISEASE [None]
  - EAR INFECTION [None]
  - TOOTH DISORDER [None]
